FAERS Safety Report 23585855 (Version 3)
Quarter: 2024Q2

REPORT INFORMATION
  Report Type: Spontaneous
  Country: JP (occurrence: JP)
  Receive Date: 20240301
  Receipt Date: 20240426
  Transmission Date: 20240716
  Serious: Yes (Hospitalization)
  Sender: FDA-Public Use
  Company Number: JP-AMGEN-JPNSP2024039887

PATIENT
  Sex: Female

DRUGS (2)
  1. EVENITY [Suspect]
     Active Substance: ROMOSOZUMAB-AQQG
     Indication: Product used for unknown indication
     Dosage: 210 MILLIGRAM
     Route: 058
     Dates: start: 202307
  2. EVENITY [Suspect]
     Active Substance: ROMOSOZUMAB-AQQG
     Dosage: 210 MILLIGRAM
     Route: 058
     Dates: start: 202403

REACTIONS (1)
  - Cardiac failure [Recovered/Resolved]

NARRATIVE: CASE EVENT DATE: 20240201
